FAERS Safety Report 25311819 (Version 2)
Quarter: 2025Q2

REPORT INFORMATION
  Report Type: Spontaneous
  Country: CN (occurrence: CN)
  Receive Date: 20250514
  Receipt Date: 20250602
  Transmission Date: 20250717
  Serious: Yes (Other)
  Sender: REGENERON
  Company Number: CN-BAYER-2025A061523

PATIENT

DRUGS (1)
  1. EYLEA [Suspect]
     Active Substance: AFLIBERCEPT
     Indication: Diabetic retinal oedema
     Dates: start: 202503

REACTIONS (2)
  - Retinopathy proliferative [Unknown]
  - Retinal detachment [Unknown]

NARRATIVE: CASE EVENT DATE: 20250401
